FAERS Safety Report 23201085 (Version 1)
Quarter: 2023Q4

REPORT INFORMATION
  Report Type: Spontaneous
  Country: DE (occurrence: DE)
  Receive Date: 20231118
  Receipt Date: 20231118
  Transmission Date: 20240109
  Serious: Yes (Other)
  Sender: FDA-Public Use
  Company Number: DE-EMBRYOTOX-202301466

PATIENT
  Age: 1 Day
  Sex: Male
  Weight: 2.53 kg

DRUGS (4)
  1. FLUOXETINE HYDROCHLORIDE [Suspect]
     Active Substance: FLUOXETINE HYDROCHLORIDE
     Indication: Depression
     Dosage: 60 [MG/D ]/ 40-60 MG/D, UNTIL GW 8, THEN PAUSED AND RESTARTED FROM GW 18 ONWARDS
     Route: 065
  2. IBUPROFEN [Concomitant]
     Active Substance: IBUPROFEN
     Indication: Gingivitis
     Dosage: 800 [MG/D ]/ 400-800 MG/D ON DEMAND
  3. IBUPROFEN [Concomitant]
     Active Substance: IBUPROFEN
     Indication: Pain
  4. Gelo-Myrtol [Concomitant]
     Indication: Rhinitis
     Dosage: 1-2 CAPSULES/D, GW 9-12 AND GW 16/17

REACTIONS (2)
  - Small for dates baby [Recovered/Resolved]
  - Foetal exposure during pregnancy [Unknown]

NARRATIVE: CASE EVENT DATE: 20230701
